FAERS Safety Report 7481282-9 (Version None)
Quarter: 2011Q2

REPORT INFORMATION
  Report Type: 
  Country: None (occurrence: None)
  Receive Date: 20110506
  Receipt Date: 20110503
  Transmission Date: 20111010
  Serious: Yes (Other)
  Sender: FDA-Public Use
  Company Number: ZYD-11-AE-087

PATIENT
  Sex: Male

DRUGS (4)
  1. PIOGLITAZONE [Suspect]
     Indication: DIABETES MELLITUS
  2. GLIMEPIRIDE [Suspect]
     Indication: DIABETES MELLITUS
  3. SITAGLIPTIN [Suspect]
     Indication: DIABETES MELLITUS
  4. METFORMIN HCL [Suspect]
     Indication: DIABETES MELLITUS
     Dosage: 2-2,5. TABS - QD, ORAL,FOR SEVERAL YEARS
     Route: 048

REACTIONS (7)
  - INJURY [None]
  - PAIN [None]
  - WRONG TECHNIQUE IN DRUG USAGE PROCESS [None]
  - HYPOGLYCAEMIA [None]
  - JOINT RANGE OF MOTION DECREASED [None]
  - ROAD TRAFFIC ACCIDENT [None]
  - EXERCISE TOLERANCE DECREASED [None]
